FAERS Safety Report 8582283-X (Version None)
Quarter: 2012Q3

REPORT INFORMATION
  Report Type: 
  Country: None (occurrence: None)
  Receive Date: 20120809
  Receipt Date: 20120807
  Transmission Date: 20120928
  Serious: Yes (Life-Threatening, Hospitalization)
  Sender: FDA-Public Use
  Company Number: SE-ROCHE-1010555

PATIENT
  Age: 58 Year
  Sex: Female
  Weight: 95.5 kg

DRUGS (12)
  1. OMEPRAZOLE [Concomitant]
     Dates: start: 20110928
  2. METOCLOPRAMIDE [Concomitant]
     Dates: start: 20110923
  3. BETAMETASONA [Concomitant]
     Dates: start: 20111031
  4. ZELBORAF [Suspect]
     Indication: MALIGNANT MELANOMA
     Dosage: LAST DOSE PRIOR TO SAE: 05/NOV/2011
     Route: 048
     Dates: start: 20111031
  5. ENOXAPARIN NATRIUM [Concomitant]
     Dates: start: 20110809
  6. LEVOTYROXIN [Concomitant]
     Indication: HYPOTHYROIDISM
     Dates: start: 20110809
  7. ZELBORAF [Suspect]
     Dates: start: 20111128, end: 20111226
  8. ZELBORAF [Suspect]
     Dates: start: 20111227
  9. ZELBORAF [Suspect]
     Dates: start: 20111121, end: 20111127
  10. XENICAL [Concomitant]
     Dates: start: 20110809
  11. ACETAMINOPHEN [Concomitant]
     Dates: start: 20110809
  12. ZELBORAF [Suspect]
     Route: 048
     Dates: start: 20111114

REACTIONS (2)
  - TUMOUR LYSIS SYNDROME [None]
  - FATIGUE [None]
